FAERS Safety Report 20809832 (Version 1)
Quarter: 2022Q2

REPORT INFORMATION
  Report Type: Report from Study
  Country: MY (occurrence: MY)
  Receive Date: 20220510
  Receipt Date: 20220510
  Transmission Date: 20220721
  Serious: Yes (Other)
  Sender: FDA-Public Use
  Company Number: MY-NOVARTISPH-NVSC2022MY066727

PATIENT
  Age: 8 Year
  Sex: Female
  Weight: 20.9 kg

DRUGS (3)
  1. NELARABINE [Suspect]
     Active Substance: NELARABINE
     Indication: Acute lymphocytic leukaemia refractory
     Dosage: 650 MG/M2, QD (X 5 DAYSX 4 CYCLES)
     Route: 042
     Dates: start: 20211024, end: 20220121
  2. FLUDARABINE [Concomitant]
     Active Substance: FLUDARABINE PHOSPHATE
     Indication: Product used for unknown indication
     Dosage: 30 MG/M2, QD (5 DAYS X EVERY 3 WEEKS X 4 CYCLES)
     Route: 065
     Dates: start: 20211024, end: 20220121
  3. ETOPOSIDE [Concomitant]
     Active Substance: ETOPOSIDE
     Indication: Product used for unknown indication
     Dosage: 100 MG/M2, QD (5 DAYS X EVERY 3 WEEKS X 4 CYCLES)
     Route: 065
     Dates: start: 20211024, end: 20220121

REACTIONS (3)
  - Acute lymphocytic leukaemia refractory [Not Recovered/Not Resolved]
  - Malignant neoplasm progression [Not Recovered/Not Resolved]
  - Drug ineffective [Unknown]

NARRATIVE: CASE EVENT DATE: 20211024
